FAERS Safety Report 8089272-2 (Version None)
Quarter: 2012Q1

REPORT INFORMATION
  Report Type: 
  Country: None (occurrence: None)
  Receive Date: 20120128
  Receipt Date: 20110817
  Transmission Date: 20120608
  Serious: No
  Sender: FDA-Public Use
  Company Number: US-ABBOTT-11P-163-0718387-00

PATIENT
  Age: 56 Year
  Sex: Female

DRUGS (6)
  1. HUMIRA [Suspect]
     Indication: PSORIASIS
     Dates: start: 20100101, end: 20101201
  2. HUMIRA [Suspect]
     Indication: COLITIS
     Dates: start: 20101201
  3. VITAMIN TAB [Concomitant]
     Indication: PRODUCT USED FOR UNKNOWN INDICATION
  4. CLINDAMYCIN [Concomitant]
     Indication: ACNE
     Dosage: 1 % LOTION APPLIED TO ACNE ON THIGHS
  5. CHANTIX [Concomitant]
     Indication: EX-TOBACCO USER
     Dosage: BID
  6. ASACOL [Concomitant]
     Indication: COLITIS
     Dosage: 6 PILLS

REACTIONS (2)
  - PSORIASIS [None]
  - THERMAL BURN [None]
